FAERS Safety Report 10469605 (Version 2)
Quarter: 2014Q2

REPORT INFORMATION
  Report Type: Spontaneous
  Country: US (occurrence: None)
  Receive Date: 20140604
  Receipt Date: 20140604
  Transmission Date: 20141212
  Serious: Yes (Other)
  Sender: FDA-Public Use
  Company Number: 20090814CINRY1078

PATIENT
  Age: 31 Year
  Sex: Female
  Weight: 113.4 kg

DRUGS (6)
  1. CINRYZE [Suspect]
     Indication: PROPHYLAXIS
     Dosage: (1000 UNIT, 2 IN 1 WK), INTRAVENOUS
     Route: 042
     Dates: start: 200904, end: 200909
  2. CINRYZE [Suspect]
     Indication: HEREDITARY ANGIOEDEMA
     Dosage: (1000 UNIT, 2 IN 1 WK), INTRAVENOUS
     Route: 042
     Dates: start: 200904, end: 200909
  3. DANAZOL [Concomitant]
  4. PRILOSEC (OMEPRAZOLE) [Concomitant]
  5. PROMETRIUM (PROGESTERONE) (CAPSULE) [Concomitant]
  6. PRENATAL VITAMINS (PARENATAL) [Concomitant]

REACTIONS (4)
  - Pregnancy [None]
  - Angioedema [None]
  - Hereditary angioedema [None]
  - Hereditary angioedema [None]
